FAERS Safety Report 11453902 (Version 2)
Quarter: 2015Q4

REPORT INFORMATION
  Report Type: Spontaneous
  Country: SE (occurrence: SE)
  Receive Date: 20150903
  Receipt Date: 20151104
  Transmission Date: 20160304
  Serious: Yes (Other)
  Sender: FDA-Public Use
  Company Number: PHHY2015SE104187

PATIENT
  Age: 92 Year
  Sex: Female

DRUGS (2)
  1. KEPPRA [Suspect]
     Active Substance: LEVETIRACETAM
     Indication: EPILEPSY
     Dosage: 250 MG, QD
     Route: 048
     Dates: start: 20150606, end: 20150710
  2. TEGRETOL [Suspect]
     Active Substance: CARBAMAZEPINE
     Indication: EPILEPSY
     Dosage: 300 MG, QD (DOSAGE 1.5 X 1.5)
     Route: 048
     Dates: start: 20150428, end: 20150710

REACTIONS (3)
  - Depressed level of consciousness [Unknown]
  - Accidental overdose [Unknown]
  - Weight decreased [Unknown]

NARRATIVE: CASE EVENT DATE: 2015
